FAERS Safety Report 23565866 (Version 1)
Quarter: 2024Q1

REPORT INFORMATION
  Report Type: Spontaneous
  Country: US (occurrence: None)
  Receive Date: 20240224
  Receipt Date: 20240224
  Transmission Date: 20240410
  Serious: Yes (Hospitalization, Disabling, Other)
  Sender: FDA-Public Use
  Company Number: None

PATIENT
  Age: 76 Year
  Sex: Female
  Weight: 68.85 kg

DRUGS (6)
  1. ISTALOL [Suspect]
     Active Substance: TIMOLOL MALEATE
     Indication: Glaucoma
     Dosage: 1 DROPS
  2. PHENOBARBITAL [Concomitant]
     Active Substance: PHENOBARBITAL
  3. DILANTIN [Concomitant]
     Active Substance: PHENYTOIN
  4. SYNTHROID [Concomitant]
     Active Substance: LEVOTHYROXINE SODIUM
  5. VITAMINS [Concomitant]
     Active Substance: VITAMINS
  6. MELATONIN [Concomitant]
     Active Substance: MELATONIN

REACTIONS (6)
  - Dyspnoea [None]
  - Fatigue [None]
  - Exercise tolerance decreased [None]
  - Bronchitis [None]
  - Near death experience [None]
  - Poisoning [None]

NARRATIVE: CASE EVENT DATE: 20240209
